FAERS Safety Report 6613328-1 (Version None)
Quarter: 2010Q1

REPORT INFORMATION
  Report Type: 
  Country: None (occurrence: None)
  Receive Date: 20100304
  Receipt Date: 20100225
  Transmission Date: 20100710
  Serious: Yes (Other)
  Sender: FDA-Public Use
  Company Number: PHHY2010IT03600

PATIENT
  Sex: Male

DRUGS (4)
  1. EXJADE [Suspect]
     Indication: HAEMOCHROMATOSIS
     Dosage: 1 GRAM DAILY
     Route: 048
     Dates: start: 20080601, end: 20091123
  2. ASPIRIN [Concomitant]
     Dosage: 1 POSOLOGIC UNIT
     Route: 048
  3. ALMARYTM [Concomitant]
     Dosage: 1 POSOLOGIC UNIT
     Route: 048
  4. ALENDROS [Concomitant]
     Dosage: 1 POSOLOGIC UNIT
     Route: 048

REACTIONS (4)
  - ALANINE AMINOTRANSFERASE INCREASED [None]
  - ASPARTATE AMINOTRANSFERASE INCREASED [None]
  - HYPERBILIRUBINAEMIA [None]
  - VERTIGO [None]
